FAERS Safety Report 9362780 (Version 2)
Quarter: 2013Q3

REPORT INFORMATION
  Report Type: Spontaneous
  Country: GR (occurrence: GR)
  Receive Date: 20130624
  Receipt Date: 20130705
  Transmission Date: 20140515
  Serious: Yes (Hospitalization, Other)
  Sender: FDA-Public Use
  Company Number: GR-PFIZER INC-2013182150

PATIENT
  Age: 61 Year
  Sex: Male

DRUGS (1)
  1. METHYLPREDNISOLONE SODIUM SUCCINATE [Suspect]
     Indication: AUTOIMMUNE HAEMOLYTIC ANAEMIA
     Dosage: 1 MG PER KG OF BODY WEIGHT PER 24 H

REACTIONS (3)
  - Meningitis bacterial [Recovered/Resolved]
  - Nocardiosis [Recovered/Resolved]
  - Brain abscess [Recovered/Resolved]
